FAERS Safety Report 5661922-7 (Version None)
Quarter: 2008Q1

REPORT INFORMATION
  Report Type: 
  Country: None (occurrence: None)
  Receive Date: 20080310
  Receipt Date: 20080310
  Transmission Date: 20080703
  Serious: Yes (Hospitalization)
  Sender: FDA-Public Use
  Company Number: None

PATIENT
  Age: 87 Year
  Sex: Female
  Weight: 72.3 kg

DRUGS (7)
  1. BENAZEPRIL HCL [Suspect]
     Indication: HYPERLIPIDAEMIA
     Dosage: 20 MG DAILY ORAL 3-4 MONTHS PRIOR TO EVENT
     Route: 048
  2. ALBUTEROL [Concomitant]
  3. ACETAMINOPHEN [Concomitant]
  4. ESOMEPRAZOLE MAGNESIUM [Concomitant]
  5. CONJUGATED ESTROGENS [Concomitant]
  6. HYDROCHLOROTHIAZIDE [Concomitant]
  7. TOLTERODINE TARTRATE [Concomitant]

REACTIONS (5)
  - ANGIOEDEMA [None]
  - BLOOD PRESSURE SYSTOLIC INCREASED [None]
  - DYSPHAGIA [None]
  - HYPERSENSITIVITY [None]
  - SALIVARY HYPERSECRETION [None]
